FAERS Safety Report 9384413 (Version 2)
Quarter: 2013Q3

REPORT INFORMATION
  Report Type: Report from Study
  Country: EC (occurrence: EC)
  Receive Date: 20130705
  Receipt Date: 20130820
  Transmission Date: 20140515
  Serious: Yes (Death, Other)
  Sender: FDA-Public Use
  Company Number: PHHY2013EC070911

PATIENT
  Age: 76 Year
  Sex: Female

DRUGS (1)
  1. ACLASTA [Suspect]
     Indication: OSTEOPOROSIS
     Dosage: YEARLY
     Route: 042
     Dates: start: 20121220

REACTIONS (17)
  - Hepatic neoplasm [Fatal]
  - Weight decreased [Fatal]
  - Liver function test abnormal [Fatal]
  - General physical health deterioration [Fatal]
  - Radiation hepatitis [Unknown]
  - Neoplasm malignant [Unknown]
  - Eating disorder [Unknown]
  - Oral pain [Unknown]
  - Oropharyngeal pain [Unknown]
  - Dry skin [Unknown]
  - Alopecia [Unknown]
  - Pallor [Unknown]
  - Dysphagia [Unknown]
  - Back pain [Not Recovered/Not Resolved]
  - Arthralgia [Unknown]
  - Diarrhoea [Unknown]
  - Muscle spasms [Unknown]
